FAERS Safety Report 5399517-5 (Version None)
Quarter: 2007Q3

REPORT INFORMATION
  Report Type: 
  Country: None (occurrence: None)
  Receive Date: 20070727
  Receipt Date: 20070713
  Transmission Date: 20080115
  Serious: Yes (Death, Other)
  Sender: FDA-Public Use
  Company Number: JP-ROCHE-498975

PATIENT
  Age: 79 Year
  Sex: Male
  Weight: 47 kg

DRUGS (11)
  1. TAMIFLU [Suspect]
     Route: 048
     Dates: start: 20070319, end: 20070319
  2. MEROPENEM TRIHYDRATE [Suspect]
     Indication: DRUG USE FOR UNKNOWN INDICATION
     Route: 042
     Dates: start: 20070319, end: 20070320
  3. ISCOTIN [Concomitant]
     Route: 048
     Dates: start: 20070223, end: 20070320
  4. RIFADIN [Concomitant]
     Route: 048
     Dates: start: 20070223, end: 20070320
  5. ETHAMBUTOL HYDROCHLORIDE [Concomitant]
     Dosage: REPORTED AS EBUTAL (ETHAMBUTAL HYDROCHLORIDE).
     Route: 048
     Dates: start: 20070223, end: 20070320
  6. PYRIDOXAL PHOSPHATE [Concomitant]
     Route: 048
     Dates: start: 20070223, end: 20070320
  7. ASPIRIN [Concomitant]
     Route: 048
     Dates: start: 20070216, end: 20070320
  8. LANSOPRAZOLE [Concomitant]
     Route: 048
     Dates: start: 20070216, end: 20070320
  9. LANIRAPID [Concomitant]
     Route: 048
     Dates: start: 20070216, end: 20070320
  10. ACARDI [Concomitant]
     Route: 048
     Dates: start: 20070216, end: 20070320
  11. SENNOSIDE [Concomitant]
     Route: 048
     Dates: start: 20070216, end: 20070320

REACTIONS (5)
  - ATRIOVENTRICULAR BLOCK COMPLETE [None]
  - FALL [None]
  - NO THERAPEUTIC RESPONSE [None]
  - SUBARACHNOID HAEMORRHAGE [None]
  - SUBDURAL HAEMATOMA [None]
